FAERS Safety Report 6841524-7 (Version None)
Quarter: 2010Q3

REPORT INFORMATION
  Report Type: 
  Country: None (occurrence: None)
  Receive Date: 20100714
  Receipt Date: 20070802
  Transmission Date: 20110219
  Serious: Yes (Other)
  Sender: FDA-Public Use
  Company Number: US-PFIZER INC-2007056121

PATIENT
  Sex: Female
  Weight: 59.9 kg

DRUGS (3)
  1. CHANTIX [Suspect]
     Indication: SMOKING CESSATION THERAPY
     Route: 048
     Dates: start: 20070703, end: 20070703
  2. CONTRACEPTIVE, UNSPECIFIED [Concomitant]
  3. ZYRTEC [Concomitant]
     Indication: SEASONAL ALLERGY

REACTIONS (8)
  - FATIGUE [None]
  - HEADACHE [None]
  - HYPOAESTHESIA [None]
  - NAUSEA [None]
  - VISION BLURRED [None]
  - VISUAL FIELD DEFECT [None]
  - VISUAL IMPAIRMENT [None]
  - VOMITING [None]
